FAERS Safety Report 13484246 (Version 1)
Quarter: 2017Q2

REPORT INFORMATION
  Report Type: Report from Study
  Country: US (occurrence: US)
  Receive Date: 20170426
  Receipt Date: 20170426
  Transmission Date: 20170830
  Serious: Yes (Other)
  Sender: FDA-Public Use
  Company Number: US-BAYER-2017-065713

PATIENT
  Age: 72 Year
  Sex: Female
  Weight: 76.19 kg

DRUGS (3)
  1. ADEMPAS [Suspect]
     Active Substance: RIOCIGUAT
     Indication: PULMONARY HYPERTENSION
     Dosage: 0.5 MG, TID
     Route: 048
  2. ADEMPAS [Suspect]
     Active Substance: RIOCIGUAT
     Indication: PULMONARY HYPERTENSION
     Dosage: UNK
     Dates: start: 20170316
  3. APIXABAN [Concomitant]
     Active Substance: APIXABAN
     Dosage: UNK

REACTIONS (11)
  - Visual impairment [Unknown]
  - Loss of consciousness [Unknown]
  - Back injury [Unknown]
  - Fatigue [Unknown]
  - Head injury [Unknown]
  - Arthropathy [Unknown]
  - Dizziness [Unknown]
  - Hypotension [Unknown]
  - Presyncope [Unknown]
  - Dyspnoea exertional [Unknown]
  - Decreased activity [Unknown]

NARRATIVE: CASE EVENT DATE: 201703
